FAERS Safety Report 5786422-5 (Version None)
Quarter: 2008Q2

REPORT INFORMATION
  Report Type: 
  Country: None (occurrence: None)
  Receive Date: 20080624
  Receipt Date: 20071005
  Transmission Date: 20081010
  Serious: No
  Sender: FDA-Public Use
  Company Number: US-ASTRAZENECA-2007UW18915

PATIENT
  Age: 79 Year
  Sex: Female

DRUGS (3)
  1. PULMICORT FLEXHALER [Suspect]
     Indication: INFECTION
     Route: 055
     Dates: start: 20070803
  2. PREDNISONE [Concomitant]
  3. AMPICILLIN [Concomitant]
     Indication: INFECTION

REACTIONS (1)
  - LYMPHADENOPATHY [None]
